FAERS Safety Report 23147595 (Version 1)
Quarter: 2023Q4

REPORT INFORMATION
  Report Type: Spontaneous
  Country: FR (occurrence: FR)
  Receive Date: 20231106
  Receipt Date: 20231106
  Transmission Date: 20240110
  Serious: Yes (Hospitalization)
  Sender: FDA-Public Use
  Company Number: None

PATIENT
  Age: 72 Year
  Sex: Female
  Weight: 85 kg

DRUGS (9)
  1. CAPECITABINE [Suspect]
     Active Substance: CAPECITABINE
     Indication: Colorectal cancer
     Dosage: DAILY DOSE: 4 GRAM
     Route: 048
     Dates: start: 20230823, end: 20230905
  2. OXALIPLATIN [Suspect]
     Active Substance: OXALIPLATIN
     Indication: Colorectal cancer
     Dosage: C1
     Dates: start: 20230821
  3. ELIQUIS [Concomitant]
     Active Substance: APIXABAN
     Dosage: 1 MORNING AND EVENING?DAILY DOSE: 10 MILLIGRAM
  4. BISOPROLOL [Concomitant]
     Active Substance: BISOPROLOL\BISOPROLOL FUMARATE
     Dosage: 1 MORNING AND EVENING?DAILY DOSE: 2.5 MILLIGRAM
  5. IRBESARTAN [Concomitant]
     Active Substance: IRBESARTAN
     Dosage: 1 IN THE MORNING?DAILY DOSE: 75 MILLIGRAM
  6. SIMVASTATIN [Concomitant]
     Active Substance: SIMVASTATIN
     Dosage: 1 IN THE EVENING?DAILY DOSE: 20 MILLIGRAM
  7. OXAZEPAM [Concomitant]
     Active Substance: OXAZEPAM
     Dosage: 1/2 IN THE EVENING?DAILY DOSE: 25 MILLIGRAM
  8. PANTOPRAZOLE [Concomitant]
     Active Substance: PANTOPRAZOLE
     Dosage: 1 IN THE EVENING?DAILY DOSE: 20 MILLIGRAM
  9. REPAGLINIDE [Concomitant]
     Active Substance: REPAGLINIDE
     Dosage: 1 MORNING, NOON AND EVENING?DAILY DOSE: 6 MILLIGRAM

REACTIONS (6)
  - Hypovolaemic shock [Recovered/Resolved]
  - Enteritis [Not Recovered/Not Resolved]
  - Coma [Unknown]
  - Encephalopathy [Unknown]
  - Confusional state [Unknown]
  - Purines abnormal [Unknown]

NARRATIVE: CASE EVENT DATE: 20230905
